FAERS Safety Report 5787998-4 (Version None)
Quarter: 2008Q2

REPORT INFORMATION
  Report Type: 
  Country: None (occurrence: None)
  Receive Date: 20080625
  Receipt Date: 20080619
  Transmission Date: 20081010
  Serious: Yes (Hospitalization)
  Sender: FDA-Public Use
  Company Number: ES-ASTRAZENECA-2008AC01573

PATIENT
  Age: 41 Year
  Sex: Female

DRUGS (6)
  1. PERFUDAL [Suspect]
     Indication: RAYNAUD'S PHENOMENON
     Route: 048
     Dates: start: 20080108, end: 20080123
  2. KALETRA [Interacting]
     Indication: HIV INFECTION
     Route: 048
     Dates: start: 20050101
  3. OMEPRAZOLE [Concomitant]
     Indication: ABDOMINAL PAIN UPPER
  4. METHADONE HCL [Concomitant]
     Indication: DRUG ABUSER
  5. EPIVIR [Concomitant]
     Indication: HIV INFECTION
  6. VIREAD [Concomitant]
     Indication: HIV INFECTION

REACTIONS (2)
  - CARDIAC FAILURE CONGESTIVE [None]
  - DRUG INTERACTION [None]
